FAERS Safety Report 6633753-2 (Version None)
Quarter: 2010Q1

REPORT INFORMATION
  Report Type: 
  Country: None (occurrence: None)
  Receive Date: 20100315
  Receipt Date: 20100304
  Transmission Date: 20100710
  Serious: Yes (Disabling, Other)
  Sender: FDA-Public Use
  Company Number: RU-BIOGENIDEC-2010BI007679

PATIENT
  Age: 18 Year
  Sex: Female

DRUGS (5)
  1. AVONEX [Suspect]
     Indication: MULTIPLE SCLEROSIS
     Route: 030
     Dates: start: 20091101, end: 20100101
  2. MILGAMMA [Concomitant]
  3. PANANGIN [Concomitant]
  4. NOOTROPIL [Concomitant]
  5. FOOD SUPPLEMENTS FOR LIVER [Concomitant]

REACTIONS (9)
  - ANXIETY [None]
  - DECREASED APPETITE [None]
  - GAIT DISTURBANCE [None]
  - INFLUENZA [None]
  - INJECTION SITE INDURATION [None]
  - NAUSEA [None]
  - PAIN IN EXTREMITY [None]
  - VOMITING [None]
  - WEIGHT DECREASED [None]
